FAERS Safety Report 9977418 (Version 1)
Quarter: 2014Q1

REPORT INFORMATION
  Report Type: Report from Study
  Country: US (occurrence: US)
  Receive Date: 20140306
  Receipt Date: 20140306
  Transmission Date: 20141002
  Serious: No
  Sender: FDA-Public Use
  Company Number: US-ABBVIE-13P-163-1162466-00

PATIENT
  Age: 57 Year
  Sex: Male

DRUGS (7)
  1. HUMIRA [Suspect]
     Indication: CROHN^S DISEASE
     Dates: start: 20130713
  2. HUMIRA [Suspect]
     Dates: start: 20130727
  3. HUMIRA [Suspect]
     Dates: start: 20130810
  4. HUMIRA [Suspect]
     Dates: start: 20130824
  5. HUMIRA [Suspect]
     Dates: start: 20130831
  6. HUMIRA [Suspect]
  7. VITAMIN B12 [Concomitant]
     Indication: PRODUCT USED FOR UNKNOWN INDICATION
     Dosage: SHOTS

REACTIONS (2)
  - Confusional state [Recovered/Resolved]
  - Inappropriate schedule of drug administration [Unknown]
